FAERS Safety Report 13412789 (Version 2)
Quarter: 2018Q1

REPORT INFORMATION
  Report Type: Spontaneous
  Country: US (occurrence: US)
  Receive Date: 20170406
  Receipt Date: 20180118
  Transmission Date: 20180508
  Serious: No
  Sender: FDA-Public Use
  Company Number: US-JNJFOC-20170308539

PATIENT
  Age: 17 Year
  Sex: Male

DRUGS (6)
  1. RISPERDAL [Suspect]
     Active Substance: RISPERIDONE
     Indication: PSYCHOTIC DISORDER
     Dosage: IN VARYING DOSE OF 0.5 MG AND 1 MG OF VARYING FREQUENCY
     Route: 048
     Dates: start: 20020402, end: 20090821
  2. RISPERDAL [Suspect]
     Active Substance: RISPERIDONE
     Indication: OPPOSITIONAL DEFIANT DISORDER
     Dosage: IN VARYING DOSE OF 0.5 MG AND 1 MG OF VARYING FREQUENCY
     Route: 048
     Dates: start: 20020402, end: 20090821
  3. RISPERDAL [Suspect]
     Active Substance: RISPERIDONE
     Indication: ATTENTION DEFICIT/HYPERACTIVITY DISORDER
     Dosage: IN VARYING DOSE OF 0.5 MG AND 1 MG OF VARYING FREQUENCY
     Route: 048
     Dates: start: 20020402, end: 20090821
  4. RISPERDAL [Suspect]
     Active Substance: RISPERIDONE
     Indication: BIPOLAR DISORDER
     Dosage: IN VARYING DOSE OF 0.5 MG AND 1 MG OF VARYING FREQUENCY
     Route: 048
     Dates: start: 20020402, end: 20090821
  5. RISPERDAL [Suspect]
     Active Substance: RISPERIDONE
     Indication: AUTISM SPECTRUM DISORDER
     Dosage: IN VARYING DOSE OF 0.5 MG AND 1 MG OF VARYING FREQUENCY
     Route: 048
     Dates: start: 20020402, end: 20090821
  6. RISPERDAL [Suspect]
     Active Substance: RISPERIDONE
     Indication: AGGRESSION
     Dosage: IN VARYING DOSE OF 0.5 MG AND 1 MG OF VARYING FREQUENCY
     Route: 048
     Dates: start: 20020402, end: 20090821

REACTIONS (2)
  - Gynaecomastia [Unknown]
  - Emotional disorder [Unknown]

NARRATIVE: CASE EVENT DATE: 20121031
